FAERS Safety Report 8615527-6 (Version None)
Quarter: 2012Q3

REPORT INFORMATION
  Report Type: 
  Country: None (occurrence: None)
  Receive Date: 20120823
  Receipt Date: 20120820
  Transmission Date: 20120928
  Serious: Yes (Other)
  Sender: FDA-Public Use
  Company Number: CA-PFIZER INC-2012124589

PATIENT
  Age: 80 Year
  Sex: Female
  Weight: 60 kg

DRUGS (4)
  1. LINEZOLID [Suspect]
     Indication: INFECTION
  2. LINEZOLID [Suspect]
     Indication: ARTHRITIS BACTERIAL
     Dosage: 600 MG, 2X/DAY
     Route: 048
     Dates: start: 20120508
  3. LASIX [Suspect]
     Indication: DIURETIC THERAPY
     Dosage: 60 MG, 1X/DAY
     Dates: start: 20120518
  4. LASIX [Suspect]
     Indication: CARDIAC FAILURE
     Dosage: 60 MG, 1X/DAY
     Route: 048
     Dates: end: 20120515

REACTIONS (3)
  - RENAL FAILURE [None]
  - BLOOD CREATININE INCREASED [None]
  - OFF LABEL USE [None]
